FAERS Safety Report 5285511-1 (Version None)
Quarter: 2007Q1

REPORT INFORMATION
  Report Type: 
  Country: None (occurrence: None)
  Receive Date: 20061227
  Receipt Date: 20061101
  Transmission Date: 20070707
  Serious: Yes (Other)
  Sender: FDA-Public Use
  Company Number: A03200606585

PATIENT
  Age: 56 Year
  Sex: Male

DRUGS (1)
  1. AMBIEN [Suspect]
     Indication: INSOMNIA
     Dosage: ORAL
     Route: 048
     Dates: start: 20060401, end: 20061023

REACTIONS (4)
  - FALL [None]
  - HEAD INJURY [None]
  - POST-TRAUMATIC HEADACHE [None]
  - SLEEP WALKING [None]
